FAERS Safety Report 4340443-8 (Version None)
Quarter: 2004Q2

REPORT INFORMATION
  Report Type: 
  Country: None (occurrence: None)
  Receive Date: 20040414
  Receipt Date: 20040405
  Transmission Date: 20050107
  Serious: Yes (Disabling)
  Sender: FDA-Public Use
  Company Number: NSADSS2002024047

PATIENT
  Age: 40 Year
  Sex: Female
  Weight: 50 kg

DRUGS (1)
  1. LEVOFLOXACIN [Suspect]
     Indication: ACUTE SINUSITIS
     Dosage: 500 MG, ORAL
     Route: 048
     Dates: start: 20020209, end: 20020219

REACTIONS (5)
  - ARTHRALGIA [None]
  - CHONDROPATHY [None]
  - KNEE DEFORMITY [None]
  - PAIN [None]
  - PATELLOFEMORAL PAIN SYNDROME [None]
